FAERS Safety Report 5537252-0 (Version None)
Quarter: 2007Q4

REPORT INFORMATION
  Report Type: 
  Country: None (occurrence: None)
  Receive Date: 20071207
  Receipt Date: 20071129
  Transmission Date: 20080405
  Serious: Yes (Hospitalization)
  Sender: FDA-Public Use
  Company Number: GB-ABBOTT-04P-167-0257790-00

PATIENT
  Sex: Female
  Weight: 66 kg

DRUGS (21)
  1. HUMIRA [Suspect]
     Indication: RHEUMATOID ARTHRITIS
     Route: 058
     Dates: start: 20030721
  2. PENICILLAMINE [Concomitant]
     Indication: RHEUMATOID ARTHRITIS
     Route: 048
     Dates: start: 19890101, end: 19890407
  3. GOLD [Concomitant]
     Indication: RHEUMATOID ARTHRITIS
     Route: 030
     Dates: start: 19980407, end: 20000101
  4. SULFASALAZINE [Concomitant]
     Indication: RHEUMATOID ARTHRITIS
     Route: 048
     Dates: start: 20010410, end: 20010726
  5. METHOTREXATE [Concomitant]
     Indication: RHEUMATOID ARTHRITIS
     Route: 048
     Dates: start: 20011211, end: 20020122
  6. METHOTREXATE [Concomitant]
     Route: 058
     Dates: start: 20020129, end: 20020601
  7. LEFLUNOMIDE [Concomitant]
     Indication: RHEUMATOID ARTHRITIS
     Route: 048
     Dates: start: 20031112
  8. ALENDRONATE SODIUM [Concomitant]
     Indication: OSTEOPOROSIS
     Route: 048
     Dates: start: 20020101
  9. ALENDRONATE SODIUM [Concomitant]
  10. CALCICHEW D3 FORTE [Concomitant]
     Indication: OSTEOPOROSIS
     Route: 048
     Dates: start: 20020101
  11. ACETAMINOPHEN W/ CODEINE [Concomitant]
     Indication: PAIN
     Route: 048
     Dates: start: 19980101
  12. ARTHROTEC [Concomitant]
     Indication: PAIN
     Route: 048
     Dates: start: 20010101, end: 20031111
  13. ISONIAZID [Concomitant]
     Indication: TUBERCULOSIS
     Route: 048
     Dates: start: 20030805
  14. PYRIDOXINE [Concomitant]
     Indication: TUBERCULOSIS
     Route: 048
     Dates: start: 20030805
  15. PYRIDOXINE [Concomitant]
     Indication: NEUROPATHY
  16. VENLAFAXINE HCL [Concomitant]
     Indication: DEPRESSION
     Dates: start: 20030823
  17. FLU VACCINE [Concomitant]
     Indication: PROPHYLAXIS
     Route: 058
     Dates: start: 20031006, end: 20031006
  18. TRIAMCINOLONE ACETONIDE [Concomitant]
     Indication: SYNOVITIS
     Dates: start: 20031020, end: 20031020
  19. CELECOXIB [Concomitant]
     Indication: BACK PAIN
     Route: 048
     Dates: start: 20031112
  20. CIPRALEX [Concomitant]
     Indication: DEPRESSION
     Route: 048
     Dates: start: 20031029
  21. CLOBETASOL PROPIONATE [Concomitant]
     Indication: PSORIASIS
     Route: 061
     Dates: start: 20031111

REACTIONS (2)
  - FALL [None]
  - MULTIPLE FRACTURES [None]
